FAERS Safety Report 10932812 (Version 1)
Quarter: 2015Q1

REPORT INFORMATION
  Report Type: Spontaneous
  Country: US (occurrence: US)
  Receive Date: 20150320
  Receipt Date: 20150320
  Transmission Date: 20150721
  Serious: No
  Sender: FDA-Public Use
  Company Number: US-TEVA-485169USA

PATIENT
  Sex: Female

DRUGS (1)
  1. MINOCYCLINE [Suspect]
     Active Substance: MINOCYCLINE\MINOCYCLINE HYDROCHLORIDE
     Dosage: 200 MILLIGRAM DAILY; TOOK 24 CAPSULES IN 2 WEEKS
     Dates: start: 201404

REACTIONS (2)
  - Exposure during pregnancy [Unknown]
  - Pregnancy [Unknown]
